FAERS Safety Report 7042309-1 (Version None)
Quarter: 2010Q4

REPORT INFORMATION
  Report Type: 
  Country: None (occurrence: None)
  Receive Date: 20101013
  Receipt Date: 20100402
  Transmission Date: 20110411
  Serious: No
  Sender: FDA-Public Use
  Company Number: US-ASTRAZENECA-2010SE14650

PATIENT
  Age: 83 Year
  Sex: Female
  Weight: 68 kg

DRUGS (6)
  1. SYMBICORT [Suspect]
     Indication: CHRONIC OBSTRUCTIVE PULMONARY DISEASE
     Dosage: 640 MCG
     Route: 055
     Dates: start: 20100201
  2. METOPROLOL [Concomitant]
     Indication: LABILE BLOOD PRESSURE
  3. VITAMINS [Concomitant]
  4. CALCIUM [Concomitant]
  5. NORVASC [Concomitant]
     Indication: LABILE BLOOD PRESSURE
  6. TYLENOL [Concomitant]

REACTIONS (2)
  - DRY MOUTH [None]
  - DRY THROAT [None]
